FAERS Safety Report 10563592 (Version 1)
Quarter: 2014Q4

REPORT INFORMATION
  Report Type: Report from Study
  Country: US (occurrence: US)
  Receive Date: 20141104
  Receipt Date: 20141104
  Transmission Date: 20150529
  Serious: Yes (Hospitalization)
  Sender: FDA-Public Use
  Company Number: US-BRISTOL-MYERS SQUIBB COMPANY-21540463

PATIENT
  Age: 63 Year
  Sex: Male
  Weight: 87.7 kg

DRUGS (2)
  1. IPILIMUMAB [Suspect]
     Active Substance: IPILIMUMAB
     Indication: MALIGNANT MELANOMA
     Route: 042
     Dates: start: 20140407
  2. INTERFERON NOS [Suspect]
     Active Substance: INTERFERON
     Route: 042
     Dates: start: 20140407

REACTIONS (3)
  - Haemoglobin decreased [Unknown]
  - Rash maculo-papular [Unknown]
  - Blood creatinine increased [Unknown]

NARRATIVE: CASE EVENT DATE: 201404
